FAERS Safety Report 11853600 (Version 2)
Quarter: 2016Q4

REPORT INFORMATION
  Report Type: Spontaneous
  Country: US (occurrence: US)
  Receive Date: 20151219
  Receipt Date: 20161222
  Transmission Date: 20170206
  Serious: No
  Sender: FDA-Public Use
  Company Number: US-BAUSCH-BL-2015-018330

PATIENT
  Sex: Female

DRUGS (5)
  1. XENAZINE [Suspect]
     Active Substance: TETRABENAZINE
     Indication: HUNTINGTON^S DISEASE
     Dosage: WEEK 1
     Route: 048
     Dates: start: 20150702
  2. XENAZINE [Suspect]
     Active Substance: TETRABENAZINE
     Route: 048
  3. XENAZINE [Suspect]
     Active Substance: TETRABENAZINE
     Dosage: WEEK 4
     Route: 048
     Dates: start: 201507
  4. XENAZINE [Suspect]
     Active Substance: TETRABENAZINE
     Dosage: WEEK 3
     Route: 048
     Dates: start: 201507
  5. XENAZINE [Suspect]
     Active Substance: TETRABENAZINE
     Dosage: WEEK 2
     Route: 048
     Dates: start: 201507

REACTIONS (4)
  - Treatment noncompliance [Unknown]
  - Depression [Unknown]
  - Vomiting [Unknown]
  - Feeling abnormal [Unknown]
